FAERS Safety Report 12665155 (Version 2)
Quarter: 2016Q3

REPORT INFORMATION
  Report Type: Report from Study
  Country: US (occurrence: US)
  Receive Date: 20160818
  Receipt Date: 20160823
  Transmission Date: 20161109
  Serious: Yes (Other)
  Sender: FDA-Public Use
  Company Number: US-ARIAD PHARMACEUTICALS, INC-2016US006693

PATIENT
  Sex: Male

DRUGS (1)
  1. ICLUSIG [Suspect]
     Active Substance: PONATINIB
     Indication: CHRONIC MYELOID LEUKAEMIA
     Dosage: 30 MG, QD
     Route: 048
     Dates: start: 20160606

REACTIONS (8)
  - Mycobacterium avium complex infection [Unknown]
  - Immunodeficiency [Unknown]
  - Alopecia [Unknown]
  - Renal tubular dysfunction [Unknown]
  - Histiocytosis haematophagic [Unknown]
  - Liver function test increased [Unknown]
  - Fatigue [Unknown]
  - Hyponatraemia [Unknown]
